FAERS Safety Report 23534691 (Version 2)
Quarter: 2024Q1

REPORT INFORMATION
  Report Type: Spontaneous
  Country: ES (occurrence: ES)
  Receive Date: 20240217
  Receipt Date: 20240304
  Transmission Date: 20240410
  Serious: Yes (Other)
  Sender: FDA-Public Use
  Company Number: None

PATIENT
  Age: 42 Year
  Sex: Female

DRUGS (2)
  1. ENALAPRIL MALEATE [Suspect]
     Active Substance: ENALAPRIL MALEATE
     Indication: Hypertension
     Dosage: ENALAPRIL MALEATO (2142MA)
     Route: 065
     Dates: start: 20230113, end: 20230415
  2. HYDROCHLOROTHIAZIDE [Concomitant]
     Active Substance: HYDROCHLOROTHIAZIDE
     Indication: Hypertension
     Dosage: HIDROCLOROTIAZIDA (1343A)
     Route: 065
     Dates: start: 20230113, end: 20230615

REACTIONS (1)
  - Oligohydramnios [Recovered/Resolved]

NARRATIVE: CASE EVENT DATE: 20230901
